FAERS Safety Report 17846149 (Version 1)
Quarter: 2020Q2

REPORT INFORMATION
  Report Type: Spontaneous
  Country: US (occurrence: US)
  Receive Date: 20200601
  Receipt Date: 20200601
  Transmission Date: 20200714
  Serious: Yes (Death, Other)
  Sender: FDA-Public Use
  Company Number: US-HQ SPECIALTY-US-2020INT000065

PATIENT

DRUGS (5)
  1. CISPLATIN. [Suspect]
     Active Substance: CISPLATIN
     Indication: ATYPICAL TERATOID/RHABDOID TUMOUR OF CNS
     Dosage: 3.5 MG/KG, TWO 21-DAY INDUCTION CYCLES, CONSECUTIVE DAYS AFTER METHOTREXATE CLEARANCE
     Route: 065
  2. VINCRISTINE [Suspect]
     Active Substance: VINCRISTINE
     Indication: ATYPICAL TERATOID/RHABDOID TUMOUR OF CNS
     Dosage: .05 MG/KG, TWO 21-DAY INDUCTION CYCLES, DAYS 1, 8, AND 15
     Route: 065
  3. ETOPOSIDE. [Suspect]
     Active Substance: ETOPOSIDE
     Indication: ATYPICAL TERATOID/RHABDOID TUMOUR OF CNS
     Dosage: 2.5 MG/KG, TWO 21-DAY INDUCTION CYCLES, CONSECUTIVE DAYS AFTER METHOTREXATE CLEARANCE
     Route: 065
  4. CYCLOPHOSPHAMIDE. [Suspect]
     Active Substance: CYCLOPHOSPHAMIDE
     Indication: ATYPICAL TERATOID/RHABDOID TUMOUR OF CNS
     Dosage: 60 MG/KG, TWO 21-DAY INDUCTION CYCLES, CONSECUTIVE DAYS AFTER METHOTREXATE CLEARANCE
     Route: 065
  5. METHOTREXATE. [Suspect]
     Active Substance: METHOTREXATE
     Indication: ATYPICAL TERATOID/RHABDOID TUMOUR OF CNS
     Dosage: 8 G, (20 G MAXIMUM), TWO 21-DAY  INDUCTION CYCLES, DAY 1
     Route: 065

REACTIONS (1)
  - Respiratory failure [Fatal]
